FAERS Safety Report 8352384-X (Version None)
Quarter: 2012Q2

REPORT INFORMATION
  Report Type: 
  Country: None (occurrence: None)
  Receive Date: 20120509
  Receipt Date: 20120425
  Transmission Date: 20120825
  Serious: Yes (Hospitalization, Other)
  Sender: FDA-Public Use
  Company Number: 2012MA005439

PATIENT
  Age: 12 Year
  Sex: Female

DRUGS (1)
  1. DOXYCYCLINE HYCLATE [Suspect]
     Indication: BORRELIA INFECTION
     Dosage: IV
     Route: 042

REACTIONS (17)
  - PALLOR [None]
  - BRADYCARDIA [None]
  - LEFT VENTRICULAR DYSFUNCTION [None]
  - HYPERHIDROSIS [None]
  - CIRCULATORY COLLAPSE [None]
  - GENERAL PHYSICAL HEALTH DETERIORATION [None]
  - SOMNOLENCE [None]
  - SINUS TACHYCARDIA [None]
  - VOMITING [None]
  - CARDIOGENIC SHOCK [None]
  - BLOOD LACTIC ACID INCREASED [None]
  - DYSPNOEA [None]
  - MOUTH HAEMORRHAGE [None]
  - PULMONARY OEDEMA [None]
  - DEPRESSED LEVEL OF CONSCIOUSNESS [None]
  - RALES [None]
  - JARISCH-HERXHEIMER REACTION [None]
